FAERS Safety Report 18103924 (Version 1)
Quarter: 2020Q3

REPORT INFORMATION
  Report Type: Spontaneous
  Country: SE (occurrence: SE)
  Receive Date: 20200803
  Receipt Date: 20200803
  Transmission Date: 20201103
  Serious: Yes (Hospitalization)
  Sender: FDA-Public Use
  Company Number: SE-TEVA-2020-SE-1808190

PATIENT
  Age: 73 Year
  Sex: Male

DRUGS (2)
  1. LEVETIRACTAM [Concomitant]
     Active Substance: LEVETIRACETAM
  2. TOPIRAMATE. [Suspect]
     Active Substance: TOPIRAMATE
     Dosage: RECENTLY INCREASED DOSE, DATE AND DOSE UNKNOWN

REACTIONS (1)
  - Bradycardia [Unknown]

NARRATIVE: CASE EVENT DATE: 202007
